FAERS Safety Report 20237130 (Version 1)
Quarter: 2021Q4

REPORT INFORMATION
  Report Type: Report from Study
  Country: CA (occurrence: CA)
  Receive Date: 20211228
  Receipt Date: 20211228
  Transmission Date: 20220303
  Serious: Yes (Other)
  Sender: FDA-Public Use
  Company Number: CA-MYLANLABS-2021M1094415

PATIENT
  Age: 33 Year
  Sex: Female

DRUGS (2)
  1. HULIO [Suspect]
     Active Substance: ADALIMUMAB-FKJP
     Indication: Colitis ulcerative
     Dosage: 40 MILLIGRAM, BIWEEKLY
  2. HULIO [Suspect]
     Active Substance: ADALIMUMAB-FKJP
     Dosage: 40 MILLIGRAM, QW

REACTIONS (6)
  - Haematochezia [Unknown]
  - Bowel movement irregularity [Unknown]
  - Faeces soft [Unknown]
  - Diarrhoea [Unknown]
  - Mucous stools [Unknown]
  - Off label use [Unknown]
